FAERS Safety Report 15009927 (Version 1)
Quarter: 2018Q2

REPORT INFORMATION
  Report Type: Spontaneous
  Country: US (occurrence: US)
  Receive Date: 20180527
  Receipt Date: 20180527
  Transmission Date: 20180711
  Serious: Yes (Hospitalization, Other)
  Sender: FDA-Public Use
  Company Number: None

PATIENT
  Age: 58 Year
  Sex: Female
  Weight: 74.25 kg

DRUGS (9)
  1. BIOTIN [Concomitant]
     Active Substance: BIOTIN
  2. SULFAMETH/TRIMETHOPRIM 800/160MG TB [Suspect]
     Active Substance: SULFAMETHOXAZOLE\TRIMETHOPRIM
     Indication: URINARY TRACT INFECTION
     Dosage: ?          QUANTITY:20 TABLET(S);?
     Route: 048
     Dates: start: 20180307, end: 20180315
  3. VITAMIN C [Concomitant]
     Active Substance: ASCORBIC ACID
  4. CENTRUM [Concomitant]
     Active Substance: VITAMINS
  5. VITAMIN B12 [Concomitant]
     Active Substance: CYANOCOBALAMIN
  6. D-3 [Concomitant]
     Active Substance: CHOLECALCIFEROL
  7. WELLBUTRIN XL [Concomitant]
     Active Substance: BUPROPION HYDROCHLORIDE
  8. GLUCOSAMINE CHONDROITIN MSM [Concomitant]
  9. CELEXA [Concomitant]
     Active Substance: CITALOPRAM HYDROBROMIDE

REACTIONS (10)
  - Chills [None]
  - Hepatic enzyme increased [None]
  - Pancreatic disorder [None]
  - Pain [None]
  - Product substitution issue [None]
  - Cold sweat [None]
  - Pyrexia [None]
  - Viral infection [None]
  - Vomiting [None]
  - Muscle atrophy [None]

NARRATIVE: CASE EVENT DATE: 20180314
